FAERS Safety Report 12648488 (Version 1)
Quarter: 2016Q3

REPORT INFORMATION
  Report Type: Spontaneous
  Country: US (occurrence: US)
  Receive Date: 20160812
  Receipt Date: 20160812
  Transmission Date: 20161109
  Serious: Yes (Other)
  Sender: FDA-Public Use
  Company Number: US-APOTEX-2016AP010446

PATIENT

DRUGS (1)
  1. MIDODRINE HYDROCHLORIDE. [Suspect]
     Active Substance: MIDODRINE HYDROCHLORIDE
     Indication: SEPTIC SHOCK
     Dosage: 10 MG EVERY 8 HOURS; INCREMENTALLY INCREASED
     Route: 048

REACTIONS (1)
  - Bradycardia [Recovered/Resolved]
